FAERS Safety Report 7893681-1 (Version None)
Quarter: 2011Q4

REPORT INFORMATION
  Report Type: 
  Country: None (occurrence: None)
  Receive Date: 20111104
  Receipt Date: 20111028
  Transmission Date: 20120403
  Serious: Yes (Hospitalization, Other)
  Sender: FDA-Public Use
  Company Number: US-ABBOTT-11P-163-0869389-00

PATIENT
  Sex: Female
  Weight: 56.8 kg

DRUGS (17)
  1. TYLENOL PM [Concomitant]
     Route: 048
     Dates: start: 20110209, end: 20110209
  2. MULTI-VITAMINS [Concomitant]
     Indication: PRODUCT USED FOR UNKNOWN INDICATION
     Route: 048
     Dates: start: 20100927, end: 20110619
  3. PHENERGAN HCL [Concomitant]
     Indication: NAUSEA
     Dosage: PILL - 1 TOTAL
     Route: 048
     Dates: start: 20101024, end: 20101031
  4. BETAMETHASONE [Concomitant]
     Indication: MATERNAL THERAPY TO ENHANCE FOETAL LUNG MATURITY
     Dates: start: 20110425, end: 20110426
  5. TYLENOL-500 [Concomitant]
     Indication: ABSCESS
     Dosage: 1000 MG AS REQUIRED
     Dates: start: 20110526, end: 20110619
  6. FLORAJEN 3 [Concomitant]
     Indication: PROBIOTIC THERAPY
     Route: 048
     Dates: start: 20100927, end: 20110619
  7. PENTASA [Concomitant]
     Indication: CROHN'S DISEASE
     Route: 048
     Dates: start: 20100927, end: 20110427
  8. TYLENOL PM [Concomitant]
     Route: 048
     Dates: start: 20110526, end: 20110619
  9. TYLENOL-500 [Concomitant]
     Indication: HEADACHE
     Dates: start: 20110209, end: 20110209
  10. AUGMENTIN [Concomitant]
     Indication: PRODUCT USED FOR UNKNOWN INDICATION
     Dosage: 875MG 2X PER DAY
     Route: 048
     Dates: start: 20110516, end: 20110522
  11. SUDAFED PM [Concomitant]
     Indication: GASTROENTERITIS VIRAL
     Route: 048
     Dates: start: 20101024, end: 20101024
  12. BENADRYL [Concomitant]
     Indication: RASH
     Route: 048
     Dates: start: 20110113, end: 20110113
  13. KEFLEX [Concomitant]
     Indication: RECTAL ABSCESS
     Route: 048
     Dates: start: 20110528, end: 20110603
  14. HUMIRA [Suspect]
     Indication: CROHN'S DISEASE
     Dates: start: 20100927, end: 20110410
  15. HUMIRA [Suspect]
     Dates: start: 20110424, end: 20110619
  16. TYLENOL PM [Concomitant]
     Indication: GASTROENTERITIS VIRAL
     Route: 048
     Dates: start: 20101024, end: 20101024
  17. CALCIUM CARBONATE [Concomitant]
     Indication: DYSPEPSIA
     Dosage: 1-2 TABLETS (1.5 PILLS) AS REQUIRED
     Dates: start: 20110202, end: 20110619

REACTIONS (11)
  - HEADACHE [None]
  - PILONIDAL CYST [None]
  - INTESTINAL MASS [None]
  - GASTROENTERITIS VIRAL [None]
  - RECTAL ABSCESS [None]
  - OLIGOHYDRAMNIOS [None]
  - NAUSEA [None]
  - DYSPEPSIA [None]
  - VOMITING [None]
  - INFECTED CYST [None]
  - RASH [None]
